FAERS Safety Report 10026375 (Version 1)
Quarter: 2014Q1

REPORT INFORMATION
  Report Type: Spontaneous
  Country: US (occurrence: US)
  Receive Date: 20140321
  Receipt Date: 20140321
  Transmission Date: 20141002
  Serious: No
  Sender: FDA-Public Use
  Company Number: US-ALLERGAN-1402662US

PATIENT
  Age: 87 Year
  Sex: Male

DRUGS (1)
  1. LUMIGAN [Suspect]
     Indication: GLAUCOMA
     Route: 047

REACTIONS (2)
  - Burning sensation [Recovered/Resolved]
  - Local swelling [Recovered/Resolved]
